FAERS Safety Report 8186722-8 (Version None)
Quarter: 2012Q1

REPORT INFORMATION
  Report Type: 
  Country: None (occurrence: None)
  Receive Date: 20120301
  Receipt Date: 20120222
  Transmission Date: 20120608
  Serious: Yes (Death, Life-Threatening, Hospitalization, Other)
  Sender: FDA-Public Use
  Company Number: 2010SP043089

PATIENT
  Age: 72 Year
  Sex: Male
  Weight: 83.0083 kg

DRUGS (8)
  1. MULTI-VITAMIN [Concomitant]
  2. TEMOZOLOMIDE [Suspect]
     Indication: GLIOBLASTOMA MULTIFORME
     Dosage: ; PO
     Route: 048
     Dates: start: 20100222
  3. ZYFLAMEND X [Concomitant]
  4. ASCORBIC ACID [Concomitant]
  5. COLECALICIFEROL [Concomitant]
  6. DEXAMETHASONE [Suspect]
     Indication: PRODUCT USED FOR UNKNOWN INDICATION
     Dosage: 4 MG;
     Dates: start: 20100315
  7. ABT-888 [Suspect]
     Indication: GLIOBLASTOMA MULTIFORME
     Dosage: 20 MG;QD;PO
     Route: 048
     Dates: start: 20100222
  8. ASCORBIC ACID [Concomitant]

REACTIONS (18)
  - ASTHENIA [None]
  - DECREASED APPETITE [None]
  - STAPHYLOCOCCAL INFECTION [None]
  - FATIGUE [None]
  - PULMONARY EMBOLISM [None]
  - HYPOTENSION [None]
  - MENTAL STATUS CHANGES [None]
  - DEEP VEIN THROMBOSIS [None]
  - ELECTROCARDIOGRAM QT PROLONGED [None]
  - DEHYDRATION [None]
  - HYPOPHAGIA [None]
  - ANAEMIA [None]
  - ABDOMINAL PAIN [None]
  - SEPTIC SHOCK [None]
  - VENOUS OCCLUSION [None]
  - BLOOD LACTIC ACID INCREASED [None]
  - OLIGURIA [None]
  - HAEMATOMA [None]
